FAERS Safety Report 4408774-0 (Version None)
Quarter: 2004Q3

REPORT INFORMATION
  Report Type: 
  Country: None (occurrence: None)
  Receive Date: 20040727
  Receipt Date: 20040720
  Transmission Date: 20050211
  Serious: Yes (Hospitalization)
  Sender: FDA-Public Use
  Company Number: GB-BRISTOL-MYERS SQUIBB COMPANY-12645586

PATIENT
  Age: 60 Year
  Sex: Male

DRUGS (11)
  1. QUESTRAN [Suspect]
     Indication: CROHN'S DISEASE
     Dosage: STARTED IN MAY-2004 2X/DAY
     Route: 048
     Dates: start: 20040621, end: 20040701
  2. QUESTRAN [Suspect]
     Indication: DIARRHOEA
     Dosage: STARTED IN MAY-2004 2X/DAY
     Route: 048
     Dates: start: 20040621, end: 20040701
  3. PREDNISOLONE [Concomitant]
     Route: 048
     Dates: end: 20040630
  4. FOLIC ACID [Concomitant]
     Route: 048
  5. QUININE SULFATE [Concomitant]
     Route: 048
  6. RANITIDINE [Concomitant]
     Route: 048
  7. ALBUTEROL SULFATE [Concomitant]
     Dosage: DOSAGE FORM = PUFFS
     Route: 055
  8. BECOTIDE [Concomitant]
     Route: 055
  9. ATROVENT [Concomitant]
     Route: 055
  10. NEORECORMON [Concomitant]
     Dosage: DOSAGE FORM = UNITS
     Route: 058
  11. PARACETAMOL [Concomitant]
     Route: 048
     Dates: start: 20040626, end: 20040630

REACTIONS (4)
  - COAGULOPATHY [None]
  - MEDICATION ERROR [None]
  - SEPSIS [None]
  - VITAMIN K DEFICIENCY [None]
